FAERS Safety Report 18275602 (Version 1)
Quarter: 2020Q3

REPORT INFORMATION
  Report Type: Spontaneous
  Country: GB (occurrence: GB)
  Receive Date: 20200917
  Receipt Date: 20200917
  Transmission Date: 20201103
  Serious: Yes (Other)
  Sender: FDA-Public Use
  Company Number: GB-SA-2020SA248405

PATIENT

DRUGS (4)
  1. DOCETAXEL. [Suspect]
     Active Substance: DOCETAXEL
     Dosage: 75 MG/M2, QCY
     Route: 042
     Dates: start: 20181206, end: 20181206
  2. DOCETAXEL. [Suspect]
     Active Substance: DOCETAXEL
     Dosage: 75 MG/M2, QCY
     Route: 042
     Dates: start: 20181115, end: 20181115
  3. DOCETAXEL. [Suspect]
     Active Substance: DOCETAXEL
     Dosage: 75 MG/M2, QCY
     Route: 042
     Dates: start: 20181227, end: 20181227
  4. DOCETAXEL. [Suspect]
     Active Substance: DOCETAXEL
     Indication: PROSTATE CANCER
     Dosage: 75 MG/M2, QCY
     Route: 042
     Dates: start: 20181025, end: 20181025

REACTIONS (6)
  - Fatigue [Recovering/Resolving]
  - Diarrhoea [Recovered/Resolved]
  - Cellulitis [Recovered/Resolved]
  - Oral pain [Recovering/Resolving]
  - Taste disorder [Recovering/Resolving]
  - Peripheral sensory neuropathy [Unknown]
